FAERS Safety Report 10036236 (Version 1)
Quarter: 2014Q1

REPORT INFORMATION
  Report Type: Spontaneous
  Country: IT (occurrence: IT)
  Receive Date: 20140325
  Receipt Date: 20140325
  Transmission Date: 20141002
  Serious: Yes (Hospitalization)
  Sender: FDA-Public Use
  Company Number: IT-WATSON-2014-05565

PATIENT
  Age: 50 Year
  Sex: Male

DRUGS (4)
  1. MIRTAZAPINE (UNKNOWN) [Suspect]
     Indication: INTENTIONAL SELF-INJURY
     Dosage: 20 DF, TOTAL
     Route: 048
     Dates: start: 20140309, end: 20140309
  2. MIRTAZAPINE (UNKNOWN) [Suspect]
     Indication: DEPRESSION
  3. EN [Suspect]
     Indication: INTENTIONAL SELF-INJURY
     Dosage: 20 ML, TOTAL
     Route: 048
     Dates: start: 20140309, end: 20140309
  4. EN [Suspect]
     Indication: DEPRESSION

REACTIONS (4)
  - Bradykinesia [Recovered/Resolved]
  - Sopor [Recovered/Resolved]
  - Intentional self-injury [Recovered/Resolved]
  - Drug abuse [Recovered/Resolved]
